FAERS Safety Report 10957743 (Version 1)
Quarter: 2015Q1

REPORT INFORMATION
  Report Type: Spontaneous
  Country: US (occurrence: US)
  Receive Date: 20150326
  Receipt Date: 20150326
  Transmission Date: 20150721
  Serious: Yes (Death)
  Sender: FDA-Public Use
  Company Number: US-CIPLA LTD.-2015US02421

PATIENT

DRUGS (6)
  1. ETHANOL [Suspect]
     Active Substance: ALCOHOL
  2. HEROIN [Suspect]
     Active Substance: DIACETYLMORPHINE
  3. BUPROPION [Suspect]
     Active Substance: BUPROPION
  4. TRAZODONE [Suspect]
     Active Substance: TRAZODONE HYDROCHLORIDE
  5. CITALOPRAM [Suspect]
     Active Substance: CITALOPRAM HYDROBROMIDE
  6. COCAINE [Suspect]
     Active Substance: COCAINE

REACTIONS (1)
  - Drug abuse [Fatal]
